FAERS Safety Report 23158509 (Version 1)
Quarter: 2023Q4

REPORT INFORMATION
  Report Type: Spontaneous
  Country: US (occurrence: US)
  Receive Date: 20231108
  Receipt Date: 20231108
  Transmission Date: 20240109
  Serious: Yes (Death, Hospitalization, Other)
  Sender: FDA-Public Use
  Company Number: US-009507513-2311USA000503

PATIENT
  Age: 75 Year
  Sex: Female

DRUGS (2)
  1. KEYTRUDA [Suspect]
     Active Substance: PEMBROLIZUMAB
     Indication: Anaplastic thyroid cancer
     Dosage: UNK
  2. LENVATINIB MESYLATE [Suspect]
     Active Substance: LENVATINIB MESYLATE
     Indication: Anaplastic thyroid cancer
     Dosage: 18 MILLIGRAM, QD
     Route: 048
     Dates: start: 20230924, end: 20231010

REACTIONS (10)
  - Death [Fatal]
  - Cardiac dysfunction [Unknown]
  - Pneumonia [Unknown]
  - Respiratory distress [Unknown]
  - Hyperkalaemia [Unknown]
  - Hypothyroidism [Unknown]
  - Asthenia [Unknown]
  - Muscular weakness [Unknown]
  - Dysphagia [Unknown]
  - Cough [Unknown]

NARRATIVE: CASE EVENT DATE: 20230101
